FAERS Safety Report 18400451 (Version 6)
Quarter: 2022Q1

REPORT INFORMATION
  Report Type: Spontaneous
  Country: US (occurrence: US)
  Receive Date: 20201019
  Receipt Date: 20220111
  Transmission Date: 20220423
  Serious: Yes (Hospitalization, Other)
  Sender: FDA-Public Use
  Company Number: US-PFIZER INC-2020400794

PATIENT
  Age: 58 Year
  Sex: Female

DRUGS (8)
  1. OXALIPLATIN [Suspect]
     Active Substance: OXALIPLATIN
     Indication: Colon cancer stage III
     Dosage: UNK, CYCLIC (12 CYCLES)
  2. OXALIPLATIN [Suspect]
     Active Substance: OXALIPLATIN
     Dosage: 65 MG/M2, CYCLIC
  3. OXALIPLATIN [Suspect]
     Active Substance: OXALIPLATIN
     Dosage: 55 MG, CYCLIC
  4. FLUOROURACIL [Concomitant]
     Active Substance: FLUOROURACIL
     Indication: Colon cancer stage III
     Dosage: UNK, CYCLIC
  5. LEUCOVORIN [Concomitant]
     Active Substance: LEUCOVORIN
     Indication: Colon cancer stage III
     Dosage: UNK, CYCLIC
  6. BEVACIZUMAB [Concomitant]
     Active Substance: BEVACIZUMAB
     Indication: Colon cancer stage III
     Dosage: UNK, CYCLIC
  7. IRINOTECAN [Concomitant]
     Active Substance: IRINOTECAN
     Indication: Colon cancer stage III
     Dosage: UNK, CYCLIC
  8. DEXAMETHASONE [Concomitant]
     Active Substance: DEXAMETHASONE
     Indication: Prophylaxis
     Dosage: 20 MG

REACTIONS (1)
  - Immune thrombocytopenia [Recovered/Resolved]
